FAERS Safety Report 7010906-5 (Version None)
Quarter: 2010Q3

REPORT INFORMATION
  Report Type: 
  Country: None (occurrence: None)
  Receive Date: 20100923
  Receipt Date: 20100923
  Transmission Date: 20110219
  Serious: Yes (Hospitalization)
  Sender: FDA-Public Use
  Company Number: None

PATIENT
  Age: 17 Year
  Sex: Female
  Weight: 58.9676 kg

DRUGS (1)
  1. TYLENOL COLD MULTI SYMPTOM 250ML MCNEIL [Suspect]
     Indication: FEELING COLD
     Dosage: 2 TABLE SPOON EVERY 4 HRS PO 1 OZ EVERY 4 HRS PO
     Route: 048
     Dates: start: 20100909, end: 20100909

REACTIONS (6)
  - BALANCE DISORDER [None]
  - DIZZINESS [None]
  - FALL [None]
  - GAIT DISTURBANCE [None]
  - MALAISE [None]
  - SYNCOPE [None]
